FAERS Safety Report 6142631-7 (Version None)
Quarter: 2009Q2

REPORT INFORMATION
  Report Type: 
  Country: None (occurrence: None)
  Receive Date: 20090403
  Receipt Date: 20071008
  Transmission Date: 20091009
  Serious: Yes (Death, Hospitalization, Other)
  Sender: FDA-Public Use
  Company Number: US-ASTRAZENECA-2006UW21676

PATIENT
  Age: 21834 Day
  Sex: Male
  Weight: 98 kg

DRUGS (41)
  1. SEROQUEL [Suspect]
     Indication: SCHIZOPHRENIA
     Route: 048
     Dates: start: 20030101, end: 20060403
  2. SEROQUEL [Suspect]
     Indication: DEPRESSION
     Route: 048
     Dates: start: 20030101, end: 20060403
  3. SEROQUEL [Suspect]
     Indication: ANXIETY
     Route: 048
     Dates: start: 20030101, end: 20060403
  4. SEROQUEL [Suspect]
     Indication: INSOMNIA
     Route: 048
     Dates: start: 20030101, end: 20060403
  5. SEROQUEL [Suspect]
     Dosage: 100-300 MG
     Route: 048
     Dates: start: 20030605
  6. SEROQUEL [Suspect]
     Dosage: 100-300 MG
     Route: 048
     Dates: start: 20030605
  7. SEROQUEL [Suspect]
     Dosage: 100-300 MG
     Route: 048
     Dates: start: 20030605
  8. SEROQUEL [Suspect]
     Dosage: 100-300 MG
     Route: 048
     Dates: start: 20030605
  9. SIMVASTATIN [Concomitant]
  10. TEMAZEPAM [Concomitant]
  11. THEOPHYLLINE [Concomitant]
  12. TRETINOIN [Concomitant]
  13. WARFARIN SODIUM [Concomitant]
  14. PRAZSOIN HCL [Concomitant]
  15. OMEPRAZOLE [Concomitant]
  16. NITROGLYCERIN [Concomitant]
  17. NIACIN [Concomitant]
  18. METFORMIN HCL [Concomitant]
  19. LISINOPRIL [Concomitant]
  20. NOVOLIN N [Concomitant]
  21. INDOMETHACIN [Concomitant]
  22. ASPIRIN [Concomitant]
  23. ATENOLOL [Concomitant]
  24. GLIPIZIDE [Concomitant]
  25. IPRATROPIUM BROMIDE [Concomitant]
  26. ISOSORBIDE [Concomitant]
  27. MECLIZINE [Concomitant]
  28. CLOPIDOGREL [Concomitant]
  29. ZYBAN [Concomitant]
  30. DISULFIRAM [Concomitant]
  31. HYDROCORTISONE [Concomitant]
  32. ZINC OXIDE OINTMENT [Concomitant]
  33. SULFAMETOXAZOLE, TRIMETHOPRIM [Concomitant]
  34. RISPERIDONE [Concomitant]
  35. TRAZODONE [Concomitant]
  36. MIRTAZAPINE [Concomitant]
  37. MORPHINE [Concomitant]
  38. GEMFIBROZIL [Concomitant]
  39. ALBUTEROL [Concomitant]
  40. DOBUTAMINE HCL [Concomitant]
  41. ATROPINE [Concomitant]

REACTIONS (52)
  - ABDOMINAL PAIN [None]
  - ACUTE CORONARY SYNDROME [None]
  - ANOREXIA [None]
  - ANXIETY [None]
  - ATAXIA [None]
  - ATRIAL FIBRILLATION [None]
  - BACK PAIN [None]
  - CARDIAC FAILURE CONGESTIVE [None]
  - CARDIO-RESPIRATORY ARREST [None]
  - CATARACT NUCLEAR [None]
  - CHEST DISCOMFORT [None]
  - CHEST PAIN [None]
  - CHRONIC OBSTRUCTIVE PULMONARY DISEASE [None]
  - CONSTIPATION [None]
  - CONVULSION [None]
  - COUGH [None]
  - DIABETES MELLITUS [None]
  - DIABETIC COMPLICATION [None]
  - DIABETIC RETINOPATHY [None]
  - DIARRHOEA [None]
  - DIZZINESS [None]
  - DRY MOUTH [None]
  - DYSARTHRIA [None]
  - DYSPEPSIA [None]
  - DYSPHAGIA [None]
  - DYSPHORIA [None]
  - DYSPNOEA EXERTIONAL [None]
  - DYSSOMNIA [None]
  - GESTATIONAL DIABETES [None]
  - HYPERHIDROSIS [None]
  - INITIAL INSOMNIA [None]
  - MAJOR DEPRESSION [None]
  - NAUSEA [None]
  - OEDEMA [None]
  - PAIN IN EXTREMITY [None]
  - PALPITATIONS [None]
  - POST-TRAUMATIC STRESS DISORDER [None]
  - PRESBYOPIA [None]
  - PRESYNCOPE [None]
  - RECTAL HAEMORRHAGE [None]
  - RENAL FAILURE CHRONIC [None]
  - SEBORRHOEIC KERATOSIS [None]
  - SKIN PAPILLOMA [None]
  - SUICIDAL IDEATION [None]
  - SWELLING [None]
  - SYNCOPE [None]
  - TINNITUS [None]
  - UPPER RESPIRATORY TRACT INFECTION [None]
  - VERTIGO [None]
  - VISION BLURRED [None]
  - VOMITING [None]
  - WEIGHT DECREASED [None]
